FAERS Safety Report 4297748-9 (Version None)
Quarter: 2004Q1

REPORT INFORMATION
  Report Type: 
  Country: None (occurrence: None)
  Receive Date: 20040217
  Receipt Date: 20040217
  Transmission Date: 20041129
  Serious: Yes (Hospitalization)
  Sender: FDA-Public Use
  Company Number: None

PATIENT
  Sex: Male
  Weight: 63.9572 kg

DRUGS (4)
  1. IRESSA [Suspect]
     Indication: TONSIL CANCER
     Dosage: 250 MG QDAY ORAL
     Route: 048
     Dates: start: 20040119, end: 20040215
  2. FLUOROURACIL [Suspect]
     Indication: TONSIL CANCER
     Dosage: 600 MG/M2 CONTINOUS INTRAVENOUS DRIP
     Route: 041
     Dates: start: 20040119, end: 20040207
  3. HYDROXYUREA [Concomitant]
  4. RADIOTHERABY [Concomitant]

REACTIONS (5)
  - DEHYDRATION [None]
  - DERMATITIS [None]
  - DYSPHAGIA [None]
  - MUCOSAL INFLAMMATION [None]
  - WEIGHT DECREASED [None]
